FAERS Safety Report 7920550-0 (Version None)
Quarter: 2011Q4

REPORT INFORMATION
  Report Type: 
  Country: None (occurrence: None)
  Receive Date: 20111117
  Receipt Date: 20110812
  Transmission Date: 20120403
  Serious: No
  Sender: FDA-Public Use
  Company Number: US-BAYER-2011-075558

PATIENT

DRUGS (1)
  1. ALEVE (CAPLET) [Suspect]
     Indication: NECK PAIN
     Route: 048

REACTIONS (2)
  - GASTROINTESTINAL DISORDER [None]
  - NECK PAIN [None]
